FAERS Safety Report 7367333-0 (Version None)
Quarter: 2011Q1

REPORT INFORMATION
  Report Type: 
  Country: None (occurrence: None)
  Receive Date: 20110322
  Receipt Date: 20110308
  Transmission Date: 20110831
  Serious: Yes (Other)
  Sender: FDA-Public Use
  Company Number: JP-PFIZER INC-2011041893

PATIENT
  Age: 77 Year
  Sex: Female
  Weight: 68.3 kg

DRUGS (10)
  1. SITAGLIPTIN PHOSPHATE [Concomitant]
     Indication: DIABETES MELLITUS
     Dosage: UNK
     Route: 048
  2. DIART [Concomitant]
     Indication: LYMPHOEDEMA
     Dosage: UNK
     Route: 048
  3. ALENDRONATE SODIUM [Concomitant]
     Indication: OSTEOPOROSIS
     Dosage: UNK
     Route: 048
  4. CANDESARTAN CILEXETIL [Concomitant]
     Indication: HYPERTENSION
     Dosage: UNK
     Route: 048
  5. TRASTUZUMAB [Concomitant]
     Indication: BREAST CANCER
     Dosage: UNK
  6. ANASTROZOLE [Concomitant]
     Indication: BREAST CANCER
     Dosage: UNK
     Route: 048
  7. PARIET [Concomitant]
     Indication: REFLUX OESOPHAGITIS
     Dosage: UNK
     Route: 048
  8. ATORVASTATIN CALCIUM [Suspect]
     Indication: HYPERCHOLESTEROLAEMIA
     Dosage: 10 MG
     Route: 048
     Dates: start: 20100910
  9. BENECID [Concomitant]
     Indication: HYPERURICAEMIA
     Dosage: UNK
     Route: 048
  10. DOCETAXEL [Concomitant]
     Indication: BREAST CANCER
     Dosage: UNK

REACTIONS (1)
  - LACUNAR INFARCTION [None]
